FAERS Safety Report 5146021-5 (Version None)
Quarter: 2006Q4

REPORT INFORMATION
  Report Type: 
  Country: None (occurrence: None)
  Receive Date: 20061102
  Receipt Date: 20061025
  Transmission Date: 20070319
  Serious: Yes (Life-Threatening)
  Sender: FDA-Public Use
  Company Number: 2006-148935-NL

PATIENT
  Age: 52 Year
  Sex: Female

DRUGS (10)
  1. MIRTAZAPINE [Suspect]
     Indication: DEPRESSION
     Dosage: 30 MG
     Route: 048
     Dates: start: 20060415, end: 20060703
  2. ACETAMINOPHEN W/ CODEINE [Suspect]
     Dosage: DF
     Route: 048
  3. ALCOHOL [Suspect]
     Dosage: 2 ORAL
     Route: 048
  4. AVAPRO [Concomitant]
  5. CENTRUM [Concomitant]
  6. KLIOVANCE [Concomitant]
  7. GABAPENTIN [Concomitant]
  8. PYRIDOXINE HYDROCHLORIDE INJ [Concomitant]
  9. CLONAZEPAM [Concomitant]
  10. THIAMINE HCL [Concomitant]

REACTIONS (15)
  - ALANINE AMINOTRANSFERASE INCREASED [None]
  - ANOREXIA [None]
  - BLOOD ALBUMIN INCREASED [None]
  - BLOOD CHOLESTEROL INCREASED [None]
  - BLOOD TRIGLYCERIDES INCREASED [None]
  - CHOLESTASIS [None]
  - GAMMA-GLUTAMYLTRANSFERASE INCREASED [None]
  - HEPATOTOXICITY [None]
  - HYPERLIPIDAEMIA [None]
  - LIPASE INCREASED [None]
  - LIVER FUNCTION TEST ABNORMAL [None]
  - MALAISE [None]
  - PANCREATITIS [None]
  - PANCYTOPENIA [None]
  - SWELLING FACE [None]
